FAERS Safety Report 12243719 (Version 1)
Quarter: 2016Q2

REPORT INFORMATION
  Report Type: Spontaneous
  Country: IT (occurrence: IT)
  Receive Date: 20160406
  Receipt Date: 20160406
  Transmission Date: 20160815
  Serious: Yes (Disabling, Other)
  Sender: FDA-Public Use
  Company Number: IT-BAUSCH-BL-2016-004808

PATIENT
  Age: 77 Year
  Sex: Female

DRUGS (7)
  1. LENDORMIN [Concomitant]
     Active Substance: BROTIZOLAM
     Indication: PRODUCT USED FOR UNKNOWN INDICATION
  2. ESTO [Concomitant]
     Indication: PRODUCT USED FOR UNKNOWN INDICATION
     Dosage: 550 MG/5 ML
  3. MACUGEN [Suspect]
     Active Substance: PEGAPTANIB SODIUM
     Indication: NEOVASCULAR AGE-RELATED MACULAR DEGENERATION
     Dosage: CYCLIC, 3 INTRAOCULAR INJECTION
     Route: 047
     Dates: start: 20150804, end: 20151026
  4. CLASTEON [Concomitant]
     Indication: PRODUCT USED FOR UNKNOWN INDICATION
     Dosage: 200MG/4ML
  5. PLAVIX [Concomitant]
     Active Substance: CLOPIDOGREL BISULFATE
     Indication: PRODUCT USED FOR UNKNOWN INDICATION
  6. COTAREG [Concomitant]
     Active Substance: HYDROCHLOROTHIAZIDE\VALSARTAN
     Indication: PRODUCT USED FOR UNKNOWN INDICATION
  7. ANNISTER [Concomitant]
     Indication: PRODUCT USED FOR UNKNOWN INDICATION
     Dosage: 25.000 I.U./2.5 ML

REACTIONS (5)
  - Visual acuity reduced [Not Recovered/Not Resolved]
  - Amnesia [Unknown]
  - Head injury [Unknown]
  - Central nervous system lesion [Unknown]
  - Hypoxic-ischaemic encephalopathy [Unknown]

NARRATIVE: CASE EVENT DATE: 20151130
